FAERS Safety Report 9013777 (Version 1)
Quarter: 2013Q1

REPORT INFORMATION
  Report Type: Spontaneous
  Country: US (occurrence: None)
  Receive Date: 20130108
  Receipt Date: 20130108
  Transmission Date: 20140127
  Serious: Yes (Other)
  Sender: FDA-Public Use
  Company Number: None

PATIENT
  Sex: Female

DRUGS (2)
  1. SOLODYN [Suspect]
     Indication: ACNE
     Dosage: ONCE A DAY
  2. ZYRTEC [Concomitant]
     Dosage: ADDED ZYRTEC 2 DAYS AFTER ITCHING AND RED BUMPS FIRST STARTED.

REACTIONS (3)
  - Pruritus [None]
  - Skin disorder [None]
  - Erythema [None]
